FAERS Safety Report 7879809 (Version 9)
Quarter: 2013Q4

REPORT INFORMATION
  Report Type: Spontaneous
  Country: US (occurrence: None)
  Receive Date: 20110331
  Receipt Date: 20131226
  Transmission Date: 20140711
  Serious: Yes (Other)
  Sender: FDA-Public Use
  Company Number: PHHY2010US86663

PATIENT
  Age: 54 Year
  Sex: Male
  Weight: 93.4 kg

DRUGS (17)
  1. TASIGNA [Suspect]
     Indication: CHRONIC MYELOID LEUKAEMIA
     Route: 048
     Dates: start: 20100127
  2. OXYCODONE (OXYCODONE) [Concomitant]
  3. MORPHINE [Concomitant]
  4. LIDODERM [Concomitant]
  5. METFORMIN HYDROCHLORIDE [Concomitant]
  6. TRAZODONE HYDROCHLORIDE [Concomitant]
  7. GABAPENTIN (GABAPENTIN) [Concomitant]
  8. NASONEX [Concomitant]
  9. CELEXA [Concomitant]
  10. XANAX [Concomitant]
  11. ZYRTEC (CETIRIZINE HYDROBROMIDE) [Concomitant]
  12. VITAMINS [Concomitant]
  13. ASPIRIN (ACETYLSALICYLIC ACID) [Concomitant]
  14. CRESTOR [Concomitant]
  15. METOPROLOL - SLOW RELEASE (METOPROLOL TARTRATE) [Concomitant]
  16. KLOR-CON [Concomitant]
  17. SEROQUEL [Concomitant]

REACTIONS (14)
  - Haematochezia [None]
  - Diabetes mellitus [None]
  - Weight increased [None]
  - Pain [None]
  - Fatigue [None]
  - Dyspnoea [None]
  - Constipation [None]
  - Swelling [None]
  - Rash [None]
  - Stomatitis [None]
  - Arthralgia [None]
  - Back pain [None]
  - Nausea [None]
  - Memory impairment [None]
